FAERS Safety Report 8101840-8 (Version None)
Quarter: 2012Q1

REPORT INFORMATION
  Report Type: 
  Country: None (occurrence: None)
  Receive Date: 20120131
  Receipt Date: 20120126
  Transmission Date: 20120608
  Serious: Yes (Other)
  Sender: FDA-Public Use
  Company Number: PHHY2011US15113

PATIENT
  Sex: Female

DRUGS (9)
  1. HERBAL EXTRACTS NOS [Concomitant]
  2. FISH OIL [Concomitant]
  3. COD-LIVER OIL [Concomitant]
  4. TRICOR [Concomitant]
  5. TASIGNA [Suspect]
     Indication: CHRONIC MYELOID LEUKAEMIA
     Dosage: 300 MG, BID
     Route: 048
     Dates: start: 20090912
  6. NEXIUM [Concomitant]
  7. COENZYME Q10 [Concomitant]
  8. ZYRTEC [Concomitant]
  9. CALCIUM [Concomitant]

REACTIONS (22)
  - DECREASED APPETITE [None]
  - OSTEOPENIA [None]
  - RHINORRHOEA [None]
  - PLATELET COUNT DECREASED [None]
  - FATIGUE [None]
  - LACTOSE INTOLERANCE [None]
  - GASTROINTESTINAL INFLAMMATION [None]
  - LUNG DISORDER [None]
  - COUGH [None]
  - ABDOMINAL DISCOMFORT [None]
  - COORDINATION ABNORMAL [None]
  - GASTROOESOPHAGEAL REFLUX DISEASE [None]
  - ERUCTATION [None]
  - DYSPNOEA [None]
  - GINGIVAL BLEEDING [None]
  - POLYP [None]
  - MEMORY IMPAIRMENT [None]
  - MUSCULOSKELETAL DISCOMFORT [None]
  - NAUSEA [None]
  - EPISTAXIS [None]
  - RETCHING [None]
  - PAIN [None]
